FAERS Safety Report 20266320 (Version 3)
Quarter: 2022Q1

REPORT INFORMATION
  Report Type: Report from Study
  Country: AU (occurrence: AU)
  Receive Date: 20211231
  Receipt Date: 20220302
  Transmission Date: 20220424
  Serious: Yes (Hospitalization)
  Sender: FDA-Public Use
  Company Number: AU-KOREA IPSEN Pharma-2021-33096

PATIENT
  Age: 62 Year
  Sex: Female

DRUGS (14)
  1. LANREOTIDE ACETATE [Suspect]
     Active Substance: LANREOTIDE ACETATE
     Indication: Gastroenteropancreatic neuroendocrine tumour disease
     Route: 058
     Dates: start: 20141201
  2. LANREOTIDE ACETATE [Suspect]
     Active Substance: LANREOTIDE ACETATE
     Indication: Carcinoid tumour
  3. LANREOTIDE ACETATE [Suspect]
     Active Substance: LANREOTIDE ACETATE
     Indication: Neuroendocrine tumour
  4. CORTISONE [Suspect]
     Active Substance: CORTISONE
     Indication: Neoplasm malignant
     Dosage: DOSE NOT REPORTED
     Route: 048
  5. DEXMETHS [Concomitant]
     Dosage: TWO IN THE MORNING
  6. FUROSEMIDE [Concomitant]
     Active Substance: FUROSEMIDE
     Dosage: 20 MGM, 2 IN 1 DAY
  7. HALOPERI [Concomitant]
     Dosage: 500 MCG (TWO THREE TIMES A DAY)
  8. IRBESARTAN [Concomitant]
     Active Substance: IRBESARTAN
     Dosage: (HALF A IN THE MORNING)
  9. HYDROMORPHONE HYDROCHLORIDE [Concomitant]
     Active Substance: HYDROMORPHONE HYDROCHLORIDE
     Dosage: 8 MG (ONE AT NIGHT AS DIRECTED)
  10. HYDROMORPHONE HYDROCHLORIDE [Concomitant]
     Active Substance: HYDROMORPHONE HYDROCHLORIDE
     Dosage: (ONE AT NIGHT)
  11. MIRTAZAPINE [Concomitant]
     Active Substance: MIRTAZAPINE
     Dosage: 15 M (ONE AT NIGHT)
  12. SPIRACTIN [Concomitant]
     Dosage: 25 MGM ( HALF IN THE MORNING)
  13. INSULIN NOS [Concomitant]
     Active Substance: INSULIN NOS
     Indication: Diabetes mellitus
  14. PC SENNA LAXATIVE [Concomitant]

REACTIONS (23)
  - Pelvic fracture [Recovered/Resolved]
  - Fall [Recovered/Resolved]
  - Diabetes mellitus inadequate control [Unknown]
  - Blood glucose decreased [Recovering/Resolving]
  - Diarrhoea [Recovered/Resolved]
  - Dizziness [Unknown]
  - Rib fracture [Recovering/Resolving]
  - Contusion [Recovering/Resolving]
  - Hand fracture [Recovering/Resolving]
  - Fall [Recovering/Resolving]
  - Fall [Recovering/Resolving]
  - Upper limb fracture [Recovering/Resolving]
  - Hip fracture [Not Recovered/Not Resolved]
  - Pneumonia [Recovering/Resolving]
  - Cataract operation [Recovered/Resolved]
  - Skin laceration [Recovering/Resolving]
  - Impaired healing [Recovering/Resolving]
  - Contusion [Not Recovered/Not Resolved]
  - Skin exfoliation [Recovering/Resolving]
  - Hypoglycaemia [Recovered/Resolved]
  - Alopecia [Not Recovered/Not Resolved]
  - Restlessness [Recovering/Resolving]
  - Off label use [Unknown]

NARRATIVE: CASE EVENT DATE: 20190801
